FAERS Safety Report 15109220 (Version 1)
Quarter: 2018Q3

REPORT INFORMATION
  Report Type: Report from Study
  Country: CA (occurrence: CA)
  Receive Date: 20180705
  Receipt Date: 20180705
  Transmission Date: 20181010
  Serious: Yes (Other)
  Sender: FDA-Public Use
  Company Number: CA-ELI_LILLY_AND_COMPANY-CA201806012254

PATIENT
  Sex: Female

DRUGS (1)
  1. OLARATUMAB [Suspect]
     Active Substance: OLARATUMAB
     Indication: PRODUCT USED FOR UNKNOWN INDICATION
     Dosage: 903 MG, UNKNOWN
     Route: 042
     Dates: start: 20180625

REACTIONS (6)
  - Cough [Recovering/Resolving]
  - Off label use [Unknown]
  - Throat tightness [Recovering/Resolving]
  - Flushing [Recovering/Resolving]
  - Feeling hot [Recovering/Resolving]
  - Headache [Recovering/Resolving]
